FAERS Safety Report 15392851 (Version 1)
Quarter: 2018Q3

REPORT INFORMATION
  Report Type: Spontaneous
  Country: US (occurrence: US)
  Receive Date: 20180911
  Receipt Date: 20180911
  Transmission Date: 20181010
  Serious: Yes (Hospitalization)
  Sender: FDA-Public Use
  Company Number: None

PATIENT
  Age: 44 Year
  Sex: Female

DRUGS (1)
  1. BOTOX [Suspect]
     Active Substance: ONABOTULINUMTOXINA
     Indication: HEMIPLEGIA
     Dosage: 100 IU EVERY 90 DAYS; INTRAMUSCULAR?
     Route: 030
     Dates: start: 20180620

REACTIONS (1)
  - Drug dispensing issue [None]

NARRATIVE: CASE EVENT DATE: 20180910
